FAERS Safety Report 17048248 (Version 1)
Quarter: 2019Q4

REPORT INFORMATION
  Report Type: Spontaneous
  Country: US (occurrence: US)
  Receive Date: 20191119
  Receipt Date: 20191119
  Transmission Date: 20200122
  Serious: Yes (Hospitalization, Other)
  Sender: FDA-Public Use
  Company Number: US-AMNEAL PHARMACEUTICALS-2019-AMRX-02644

PATIENT
  Age: 63 Year
  Sex: Female
  Weight: 58 kg

DRUGS (1)
  1. RYTARY [Suspect]
     Active Substance: CARBIDOPA\LEVODOPA
     Indication: PARKINSON^S DISEASE
     Dosage: 5 CAPSULES, 5 /DAY (TAKE 4 CAPSULES BY MOUTH 4 TIMES DAILY AND 1 CAPSULE DURING THE NIGHT AS NEEDED)
     Route: 048
     Dates: start: 201905

REACTIONS (2)
  - Lower limb fracture [Recovering/Resolving]
  - Fall [Recovering/Resolving]

NARRATIVE: CASE EVENT DATE: 20191021
